FAERS Safety Report 15618339 (Version 2)
Quarter: 2019Q1

REPORT INFORMATION
  Report Type: Spontaneous
  Country: US (occurrence: US)
  Receive Date: 20181114
  Receipt Date: 20190117
  Transmission Date: 20190417
  Serious: No
  Sender: FDA-Public Use
  Company Number: US-PFIZER INC-2018452893

PATIENT
  Age: 48 Year
  Sex: Female

DRUGS (1)
  1. METHOTREXATE SODIUM. [Suspect]
     Active Substance: METHOTREXATE SODIUM
     Dosage: 10 MG, WEEKLY
     Dates: end: 201710

REACTIONS (6)
  - Rash [Unknown]
  - Rosacea [Unknown]
  - Drug hypersensitivity [Unknown]
  - Rash pustular [Unknown]
  - Pustular psoriasis [Unknown]
  - Acne [Unknown]
